FAERS Safety Report 13084728 (Version 1)
Quarter: 2017Q1

REPORT INFORMATION
  Report Type: Spontaneous
  Country: US (occurrence: US)
  Receive Date: 20170103
  Receipt Date: 20170103
  Transmission Date: 20170428
  Serious: No
  Sender: FDA-Public Use
  Company Number: None

PATIENT
  Age: 66 Year
  Sex: Male

DRUGS (1)
  1. STELARA [Suspect]
     Active Substance: USTEKINUMAB
     Indication: PSORIASIS
     Dosage: 45 MG AT WEEK 4, THEN EVERY 12 WEEKS THEREAFTER INJECT
     Dates: start: 20160927, end: 20161230

REACTIONS (1)
  - Arthritis [None]

NARRATIVE: CASE EVENT DATE: 20160927
